FAERS Safety Report 20920418 (Version 1)
Quarter: 2022Q2

REPORT INFORMATION
  Report Type: Spontaneous
  Country: US (occurrence: None)
  Receive Date: 20220604
  Receipt Date: 20220604
  Transmission Date: 20220720
  Serious: Yes (Other)
  Sender: FDA-Public Use
  Company Number: None

PATIENT
  Age: 70 Year
  Sex: Female
  Weight: 123.75 kg

DRUGS (17)
  1. BUPRENORPHINE HYDROCHLORIDE\NALOXONE HYDROCHLORIDE [Suspect]
     Active Substance: BUPRENORPHINE HYDROCHLORIDE\NALOXONE HYDROCHLORIDE
     Indication: Drug withdrawal syndrome
     Dosage: OTHER QUANTITY : 1 60;?FREQUENCY : TWICE A DAY;?
     Route: 060
  2. AMILORIDE [Concomitant]
     Active Substance: AMILORIDE
  3. ARIPIPRAZOLE [Concomitant]
     Active Substance: ARIPIPRAZOLE
  4. CALCIUM ACETATE [Concomitant]
     Active Substance: CALCIUM ACETATE
  5. CLONAZEPAM [Concomitant]
     Active Substance: CLONAZEPAM
  6. FLUOXETINE [Concomitant]
     Active Substance: FLUOXETINE HYDROCHLORIDE
  7. FUROSEMIDE [Concomitant]
     Active Substance: FUROSEMIDE
  8. LAMOTRIGINE [Concomitant]
     Active Substance: LAMOTRIGINE
  9. OXYBUTYNIN [Concomitant]
     Active Substance: OXYBUTYNIN
  10. POTASSIUM CHLORIDE [Concomitant]
     Active Substance: POTASSIUM CHLORIDE
  11. PREGABALIN [Concomitant]
     Active Substance: PREGABALIN
  12. SIMVASTATIN [Concomitant]
     Active Substance: SIMVASTATIN
  13. SYNTHROID [Concomitant]
     Active Substance: LEVOTHYROXINE SODIUM
  14. ZOFRAN [Concomitant]
     Active Substance: ONDANSETRON HYDROCHLORIDE
  15. BIOTIN [Concomitant]
     Active Substance: BIOTIN
  16. NIACIN [Concomitant]
     Active Substance: NIACIN
  17. VITAMINS [Concomitant]
     Active Substance: VITAMINS

REACTIONS (2)
  - Tooth loss [None]
  - Denture wearer [None]
